FAERS Safety Report 6618820 (Version 2)
Quarter: 2016Q4

REPORT INFORMATION
  Report Type: Spontaneous
  Country: US (occurrence: US)
  Receive Date: 20080418
  Receipt Date: 20161018
  Transmission Date: 20170207
  Serious: Yes (Life-Threatening, Other)
  Sender: FDA-Public Use
  Company Number: US-PFIZER INC-2008032792

PATIENT
  Age: 39 Year
  Sex: Male

DRUGS (3)
  1. PREDNISONE. [Suspect]
     Active Substance: PREDNISONE
     Route: 048
  2. HYDROCORTISONE SODIUM SUCCINATE [Suspect]
     Active Substance: HYDROCORTISONE SODIUM SUCCINATE
     Route: 051
  3. ACTH [Suspect]
     Active Substance: CORTICOTROPIN

REACTIONS (7)
  - Phaeochromocytoma crisis [Unknown]
  - Myocardial ischaemia [Unknown]
  - Pulmonary oedema [Unknown]
  - Hyperthermia [Unknown]
  - Cardiac failure congestive [Unknown]
  - Aspartate aminotransferase increased [Unknown]
  - Hypertension [Unknown]
